FAERS Safety Report 8402929 (Version 5)
Quarter: 2015Q3

REPORT INFORMATION
  Report Type: Report from Study
  Country: JP (occurrence: JP)
  Receive Date: 20120213
  Receipt Date: 20150821
  Transmission Date: 20151125
  Serious: Yes (Death, Other)
  Sender: FDA-Public Use
  Company Number: JP-ALEXION-A201200217

PATIENT

DRUGS (10)
  1. NEORAL [Suspect]
     Active Substance: CYCLOSPORINE
     Indication: PRODUCT USED FOR UNKNOWN INDICATION
     Dosage: 100-75 MG, DAILY
     Route: 048
     Dates: end: 201007
  2. NEORAL [Suspect]
     Active Substance: CYCLOSPORINE
     Dosage: 75-50 MG, DAILY
     Route: 048
     Dates: start: 201007, end: 20120207
  3. PREDNISOLONE. [Suspect]
     Active Substance: PREDNISOLONE
     Dosage: 5 MG, DAILY
     Route: 048
     Dates: start: 20120110, end: 20120117
  4. PRODIF [Concomitant]
     Active Substance: FOSFLUCONAZOLE
     Indication: CANDIDA ENDOPHTHALMITIS
     Dosage: 100 MG, QD
     Route: 065
     Dates: start: 20111124, end: 20120124
  5. PREDNISOLONE. [Suspect]
     Active Substance: PREDNISOLONE
     Dosage: 10 MG, DAILY
     Route: 048
     Dates: start: 20120104, end: 20120109
  6. SOLIRIS [Suspect]
     Active Substance: ECULIZUMAB
     Indication: PAROXYSMAL NOCTURNAL HAEMOGLOBINURIA
     Dosage: 600 MG, QW
     Route: 042
     Dates: start: 20120110, end: 20120117
  7. ITRACONAZOLE. [Concomitant]
     Active Substance: ITRACONAZOLE
     Indication: CANDIDA ENDOPHTHALMITIS
     Dosage: 200 MG, QD
     Route: 065
     Dates: start: 20111227, end: 20120124
  8. PREDNISOLONE. [Suspect]
     Active Substance: PREDNISOLONE
     Indication: PRODUCT USED FOR UNKNOWN INDICATION
     Dosage: 20 MG, DAILY
     Route: 048
     Dates: start: 201007, end: 20111225
  9. CORTRIL [Concomitant]
     Active Substance: HYDROCORTISONE
     Indication: PRODUCT USED FOR UNKNOWN INDICATION
     Route: 065
  10. PREDNISOLONE. [Suspect]
     Active Substance: PREDNISOLONE
     Dosage: 15 MG, DAILY
     Route: 048
     Dates: start: 20111226, end: 20120103

REACTIONS (7)
  - Pneumonia viral [Fatal]
  - Pneumocystis jirovecii pneumonia [Fatal]
  - Haemoglobin decreased [Unknown]
  - Pneumonia fungal [Fatal]
  - Blood lactate dehydrogenase increased [Unknown]
  - Pneumonia bacterial [Fatal]
  - Platelet count decreased [Unknown]

NARRATIVE: CASE EVENT DATE: 20120110
